FAERS Safety Report 8233572-X (Version None)
Quarter: 2012Q1

REPORT INFORMATION
  Report Type: 
  Country: None (occurrence: None)
  Receive Date: 20120326
  Receipt Date: 20120313
  Transmission Date: 20120608
  Serious: Yes (Hospitalization, Other)
  Sender: FDA-Public Use
  Company Number: PHHY2012JP022957

PATIENT
  Age: 77 Year
  Sex: Male

DRUGS (6)
  1. FAMVIR [Suspect]
     Indication: HERPES ZOSTER
     Dosage: 500 MG, TID
     Dates: start: 20110714, end: 20110715
  2. VESICUM [Concomitant]
     Route: 003
     Dates: start: 20110714
  3. METHYCOBAL [Concomitant]
     Dosage: 1500 UG, UNK
     Route: 048
     Dates: start: 20110712
  4. AMITRIPTYLINE HCL [Concomitant]
     Dosage: 10 MG, UNK
     Route: 048
     Dates: start: 20110714
  5. FAMOTIDINE [Concomitant]
     Dosage: 10 MG, UNK
     Route: 048
     Dates: start: 20110712
  6. LOXONIN [Concomitant]
     Dosage: 180 MG, UNK
     Route: 048
     Dates: start: 20110712

REACTIONS (1)
  - CONVULSION [None]
